FAERS Safety Report 6259322-4 (Version None)
Quarter: 2009Q3

REPORT INFORMATION
  Report Type: 
  Country: None (occurrence: None)
  Receive Date: 20090707
  Receipt Date: 20090701
  Transmission Date: 20100115
  Serious: Yes (Death)
  Sender: FDA-Public Use
  Company Number: US-GILEAD-2009-0022899

PATIENT
  Sex: Male

DRUGS (10)
  1. LETAIRIS [Suspect]
     Indication: PULMONARY ARTERIAL HYPERTENSION
     Route: 048
     Dates: start: 20080612, end: 20090629
  2. REMODULIN [Concomitant]
  3. REVATIO [Concomitant]
  4. DIGOXIN [Concomitant]
  5. ZOCOR [Concomitant]
  6. ALACTONE [Concomitant]
  7. LASIX [Concomitant]
  8. WARFARIN [Concomitant]
  9. COMBIGAN [Concomitant]
  10. FERROUS SULFATE TAB [Concomitant]

REACTIONS (1)
  - DEATH [None]
